FAERS Safety Report 4306752-3 (Version None)
Quarter: 2004Q1

REPORT INFORMATION
  Report Type: 
  Country: None (occurrence: None)
  Receive Date: 20040227
  Receipt Date: 20031023
  Transmission Date: 20041129
  Serious: Yes (Hospitalization)
  Sender: FDA-Public Use
  Company Number: BW-BRISTOL-MYERS SQUIBB COMPANY-12426961

PATIENT

DRUGS (3)
  1. EFAVIRENZ [Suspect]
     Indication: HIV INFECTION
     Dosage: THERAPY HELD SINCE 09-OCT-2003
  2. DIDANOSINE [Suspect]
     Indication: HIV INFECTION
     Dosage: THERAPY HELD SINCE 09-OCT-2003
  3. ZIDOVUDINE [Suspect]
     Indication: HIV INFECTION
     Dosage: THERAPY HELD SINCE 09-OCT-2003

REACTIONS (3)
  - ANAEMIA [None]
  - DIARRHOEA [None]
  - PNEUMONIA [None]
